FAERS Safety Report 8931442 (Version 3)
Quarter: 2013Q1

REPORT INFORMATION
  Report Type: Spontaneous
  Country: US (occurrence: US)
  Receive Date: 20121128
  Receipt Date: 20130107
  Transmission Date: 20140127
  Serious: Yes (Other)
  Sender: FDA-Public Use
  Company Number: US-ROCHE-623119

PATIENT
  Age: 71 Year
  Sex: Female

DRUGS (5)
  1. BONIVA [Suspect]
     Indication: OSTEOPOROSIS
     Dosage: STRENGTH AND DOSE: 3 MG/ML
     Route: 065
  2. DIOVAN [Concomitant]
  3. CALCIUM NOS [Concomitant]
  4. VITAMIN B12 [Concomitant]
     Dosage: DRUG: VITAMIN B 12 SL
     Route: 065
  5. FISH OIL [Concomitant]

REACTIONS (21)
  - Transient ischaemic attack [Unknown]
  - Medical device change [Unknown]
  - Myalgia [Unknown]
  - Bone pain [Not Recovered/Not Resolved]
  - Arthralgia [Unknown]
  - Back pain [Unknown]
  - Fatigue [Unknown]
  - Feeling abnormal [Unknown]
  - Hot flush [Unknown]
  - Musculoskeletal stiffness [Unknown]
  - Hypersensitivity [Unknown]
  - Depression [Unknown]
  - Memory impairment [Unknown]
  - Fracture [Unknown]
  - Breast pain [Unknown]
  - Drug ineffective [Unknown]
  - Thyroid neoplasm [Unknown]
  - Thinking abnormal [Unknown]
  - Pain [Unknown]
  - Nausea [Unknown]
  - Malaise [Unknown]
